FAERS Safety Report 21643149 (Version 1)
Quarter: 2022Q4

REPORT INFORMATION
  Report Type: Spontaneous
  Country: FR (occurrence: FR)
  Receive Date: 20221125
  Receipt Date: 20221125
  Transmission Date: 20230112
  Serious: Yes (Hospitalization)
  Sender: FDA-Public Use
  Company Number: None

PATIENT
  Age: 61 Year
  Sex: Male
  Weight: 80 kg

DRUGS (16)
  1. HYDROXYUREA [Suspect]
     Active Substance: HYDROXYUREA
     Indication: Acute leukaemia
     Route: 048
     Dates: start: 20221030, end: 20221105
  2. FASTURTEC [Suspect]
     Active Substance: RASBURICASE
     Indication: Acute leukaemia
     Route: 042
     Dates: start: 20221029, end: 20221030
  3. KARDEGIC [Concomitant]
     Active Substance: ASPIRIN DL-LYSINE
     Dosage: 1 IN THE MORNING?DAILY DOSE: 1 DOSAGE FORM
  4. CRESTOR [Concomitant]
     Active Substance: ROSUVASTATIN CALCIUM
     Dosage: 1 IN THE EVENING?DAILY DOSE: 1 DOSAGE FORM
  5. BISOPROLOL [Concomitant]
     Active Substance: BISOPROLOL
     Dosage: 1 IN THE EVENING?DAILY DOSE: 1 DOSAGE FORM
  6. AMLODIPINE [Concomitant]
     Active Substance: AMLODIPINE BESYLATE
     Dosage: 1 IN THE MORNING ?DAILY DOSE: 1 DOSAGE FORM
  7. ALDACTONE [Concomitant]
     Active Substance: SPIRONOLACTONE
     Dosage: 1 IN THE MORNING?DAILY DOSE: 1 DOSAGE FORM
  8. METFORMIN [Concomitant]
     Active Substance: METFORMIN HYDROCHLORIDE
     Dosage: 1 IN THE MORNING AND 1 IN THE EVENING ?DAILY DOSE: 2 DOSAGE FORM
  9. PREGABALIN [Concomitant]
     Active Substance: PREGABALIN
     Dosage: 1 IN THE MORNING AND 1 IN THE EVENING ?DAILY DOSE: 2 DOSAGE FORM
  10. JANUVIA [Concomitant]
     Active Substance: SITAGLIPTIN PHOSPHATE
     Dosage: 1 IN THE MORNING ?DAILY DOSE: 1 DOSAGE FORM
  11. DOLIPRANE [Concomitant]
     Active Substance: ACETAMINOPHEN
     Dosage: 2 IN THE MORNING, 2 AT LUNCHTIME AND 2 IN THE EVENING ?DAILY DOSE: 6 DOSAGE FORM
  12. POLYETHYLENE GLYCOL 4000 [Concomitant]
     Active Substance: POLYETHYLENE GLYCOL 4000
     Indication: Constipation
     Dosage: 10 G: IF CONSTIPATION
  13. CHOLECALCIFEROL [Concomitant]
     Active Substance: CHOLECALCIFEROL
     Dosage: 1 AMPOULE PER WEEK FOR 1 MONTH
     Dates: start: 202210
  14. LOVENOX [Concomitant]
     Active Substance: ENOXAPARIN SODIUM
     Dosage: 1 INJECTION PER DAY?DAILY DOSE: 1 DOSAGE FORM
  15. SODIUM CHLORIDE [Concomitant]
     Active Substance: SODIUM CHLORIDE
     Dosage: 2000 ML/24H?DAILY DOSE: 2000 MILLILITRE
  16. ELTROMBOPAG OLAMINE [Concomitant]
     Active Substance: ELTROMBOPAG OLAMINE
     Dates: end: 202210

REACTIONS (4)
  - Coombs positive haemolytic anaemia [Recovered/Resolved]
  - Methaemoglobinaemia [Recovered/Resolved]
  - Renal failure [Unknown]
  - Disseminated intravascular coagulation [Unknown]

NARRATIVE: CASE EVENT DATE: 20221031
